FAERS Safety Report 5329485-3 (Version None)
Quarter: 2007Q2

REPORT INFORMATION
  Report Type: 
  Country: None (occurrence: None)
  Receive Date: 20070221
  Receipt Date: 20060420
  Transmission Date: 20071010
  Serious: Yes (Other)
  Sender: FDA-Public Use
  Company Number: BDI-008168

PATIENT
  Age: 19 Year
  Sex: Female

DRUGS (2)
  1. ISOVUE-300 [Suspect]
     Indication: ABDOMINAL PAIN LOWER
     Dosage: SY
     Dates: start: 20060419, end: 20060419
  2. ISOVUE-300 [Suspect]
     Indication: COMPUTERISED TOMOGRAM
     Dosage: SY
     Dates: start: 20060419, end: 20060419

REACTIONS (4)
  - CONVULSION [None]
  - SNEEZING [None]
  - SWELLING FACE [None]
  - SYNCOPE [None]
